FAERS Safety Report 16123695 (Version 1)
Quarter: 2019Q1

REPORT INFORMATION
  Report Type: Spontaneous
  Country: LV (occurrence: LV)
  Receive Date: 20190327
  Receipt Date: 20190327
  Transmission Date: 20190418
  Serious: Yes (Other)
  Sender: FDA-Public Use
  Company Number: LV-MYLANLABS-2019M1026687

PATIENT
  Age: 28 Year
  Sex: Female

DRUGS (2)
  1. FLUTICASONE,SALMETEROL MYLAN [Suspect]
     Active Substance: FLUTICASONE PROPIONATE\SALMETEROL XINAFOATE
     Indication: PRODUCT USED FOR UNKNOWN INDICATION
     Dosage: 2 DOSAGE FORM, QD (2 PUFF(S), QD)
  2. SALMETEROL [Suspect]
     Active Substance: SALMETEROL
     Indication: PRODUCT USED FOR UNKNOWN INDICATION
     Dosage: 0.1 MG, PRN

REACTIONS (5)
  - Asthenia [Unknown]
  - Cough [Unknown]
  - Wheezing [Unknown]
  - Night sweats [Unknown]
  - Pulmonary tuberculosis [Unknown]

NARRATIVE: CASE EVENT DATE: 201708
